FAERS Safety Report 7518139-0 (Version None)
Quarter: 2011Q2

REPORT INFORMATION
  Report Type: 
  Country: None (occurrence: None)
  Receive Date: 20110602
  Receipt Date: 20110524
  Transmission Date: 20111010
  Serious: Yes (Other)
  Sender: FDA-Public Use
  Company Number: US-BAYER-2011-045508

PATIENT
  Age: 27 Year
  Sex: Female

DRUGS (2)
  1. YAZ [Suspect]
     Indication: PRODUCT USED FOR UNKNOWN INDICATION
     Dosage: UNK
     Dates: start: 20070918, end: 20071213
  2. YAZ [Suspect]
     Dosage: UNK
     Dates: start: 20090424, end: 20090519

REACTIONS (2)
  - INJURY [None]
  - SUPERIOR SAGITTAL SINUS THROMBOSIS [None]
